FAERS Safety Report 13540405 (Version 1)
Quarter: 2017Q2

REPORT INFORMATION
  Report Type: Report from Study
  Country: US (occurrence: US)
  Receive Date: 20170512
  Receipt Date: 20170512
  Transmission Date: 20170830
  Serious: Yes (Hospitalization)
  Sender: FDA-Public Use
  Company Number: PHHY2017US069281

PATIENT
  Age: 53 Year
  Sex: Female
  Weight: 60 kg

DRUGS (6)
  1. GENERIC CARBAMAZEPINE [Suspect]
     Active Substance: CARBAMAZEPINE
     Indication: EPILEPSY
     Dosage: 400 MG, UNK
     Route: 048
     Dates: start: 201507
  2. VALPROATE SODIUM. [Concomitant]
     Active Substance: VALPROATE SODIUM
     Indication: PRODUCT USED FOR UNKNOWN INDICATION
     Route: 065
  3. FYCOMPA [Suspect]
     Active Substance: PERAMPANEL
     Dosage: 6 MG, QD
     Route: 048
     Dates: start: 20170207
  4. FYCOMPA [Suspect]
     Active Substance: PERAMPANEL
     Indication: EPILEPSY
     Dosage: 2 MG, QD
     Route: 048
     Dates: start: 20160602, end: 20170129
  5. DEPAKINE CHRONO [Concomitant]
     Active Substance: VALPROATE SODIUM
     Indication: PRODUCT USED FOR UNKNOWN INDICATION
     Route: 065
  6. FYCOMPA [Suspect]
     Active Substance: PERAMPANEL
     Dosage: 4 MG, QD
     Route: 048
     Dates: start: 20170129, end: 20170206

REACTIONS (4)
  - Malaise [Unknown]
  - Toxicity to various agents [Unknown]
  - Hyponatraemia [Unknown]
  - Status epilepticus [Unknown]

NARRATIVE: CASE EVENT DATE: 20160624
